FAERS Safety Report 17412315 (Version 8)
Quarter: 2022Q4

REPORT INFORMATION
  Report Type: Report from Study
  Country: GB (occurrence: GB)
  Receive Date: 20200213
  Receipt Date: 20221021
  Transmission Date: 20230112
  Serious: Yes (Hospitalization, Other)
  Sender: FDA-Public Use
  Company Number: None

PATIENT
  Age: 80 Year
  Sex: Female

DRUGS (18)
  1. LETROZOLE [Suspect]
     Active Substance: LETROZOLE
     Indication: HER2 positive breast cancer
     Route: 048
     Dates: start: 20151103
  2. TRASTUZUMAB [Suspect]
     Active Substance: TRASTUZUMAB
     Indication: HER2 positive breast cancer
     Route: 058
     Dates: start: 20151223, end: 20160316
  3. ZOLEDRONIC ACID [Concomitant]
     Active Substance: ZOLEDRONIC ACID
     Route: 042
     Dates: start: 20160203
  4. RAMIPRIL [Concomitant]
     Active Substance: RAMIPRIL
     Route: 048
  5. FUROSEMIDE [Concomitant]
     Active Substance: FUROSEMIDE
     Indication: Prophylaxis
     Route: 048
     Dates: start: 20160208, end: 20160212
  6. TINZAPARIN [Concomitant]
     Active Substance: TINZAPARIN
     Dosage: DOSE: 3500 UNITS
     Route: 058
     Dates: start: 20160302, end: 20160314
  7. BENDROFLUMETHIAZIDE [Concomitant]
     Active Substance: BENDROFLUMETHIAZIDE
     Route: 048
  8. SODIUM CHLORIDE [Concomitant]
     Active Substance: SODIUM CHLORIDE
     Indication: Prophylaxis
     Dosage: PRN
     Dates: start: 20160130, end: 20160130
  9. ATENOLOL [Concomitant]
     Active Substance: ATENOLOL
     Route: 054
  10. SENNA LEAF [Concomitant]
     Active Substance: SENNA LEAF
     Dosage: 3500 UNITS
     Dates: start: 20160302, end: 20160312
  11. FLUCLOXACILLIN [Concomitant]
     Active Substance: FLUCLOXACILLIN
     Indication: Cellulitis
     Route: 048
     Dates: start: 20160106
  12. ACETAMINOPHEN [Concomitant]
     Active Substance: ACETAMINOPHEN
     Indication: Analgesic therapy
     Route: 065
     Dates: start: 20160130, end: 20160308
  13. WARFARIN [Concomitant]
     Active Substance: WARFARIN
     Route: 048
     Dates: end: 20160217
  14. MORPHINE SULFATE [Concomitant]
     Active Substance: MORPHINE SULFATE
  15. CO-DYDRAMOL [Concomitant]
     Active Substance: ACETAMINOPHEN\DIHYDROCODEINE
     Indication: Prophylaxis
     Dosage: 10/500 MG
     Route: 048
     Dates: start: 20160130, end: 20160204
  16. FUROSEMIDE [Concomitant]
     Active Substance: FUROSEMIDE
     Route: 048
     Dates: start: 20160208, end: 20160212
  17. ZOLEDRONIC ACID [Concomitant]
     Active Substance: ZOLEDRONIC ACID
     Dates: start: 20160205, end: 20160211
  18. FLUCLOXACILLIN [Concomitant]
     Active Substance: FLUCLOXACILLIN
     Route: 048
     Dates: start: 20160205, end: 20160211

REACTIONS (20)
  - Hypotension [Recovered/Resolved]
  - Acidosis [Recovered/Resolved]
  - Melaena [Recovered/Resolved]
  - Diverticulum [Not Recovered/Not Resolved]
  - Cellulitis [Not Recovered/Not Resolved]
  - Skin disorder [Not Recovered/Not Resolved]
  - Agitation [Unknown]
  - Oropharyngeal pain [Recovered/Resolved]
  - Sepsis [Not Recovered/Not Resolved]
  - Vomiting [Recovered/Resolved]
  - Cough [Recovered/Resolved]
  - Anaemia [Not Recovered/Not Resolved]
  - Hyperglycaemia [Recovered/Resolved]
  - Confusional state [Recovered/Resolved]
  - Constipation [Not Recovered/Not Resolved]
  - International normalised ratio increased [Recovered/Resolved]
  - Pain [Not Recovered/Not Resolved]
  - Blood creatinine increased [Recovered/Resolved]
  - Hypoglycaemia [Recovered/Resolved]
  - Rectal haemorrhage [Recovered/Resolved]

NARRATIVE: CASE EVENT DATE: 20160119
